FAERS Safety Report 10425654 (Version 4)
Quarter: 2014Q4

REPORT INFORMATION
  Report Type: Spontaneous
  Country: JP (occurrence: JP)
  Receive Date: 20140903
  Receipt Date: 20141029
  Transmission Date: 20150528
  Serious: Yes (Hospitalization)
  Sender: FDA-Public Use
  Company Number: JP-ROCHE-1456189

PATIENT
  Age: 76 Year
  Sex: Female
  Weight: 44 kg

DRUGS (18)
  1. MIRCERA [Suspect]
     Active Substance: PEGZEREPOETIN ALFA
     Route: 058
     Dates: start: 20121010, end: 20121010
  2. MIRCERA [Suspect]
     Active Substance: PEGZEREPOETIN ALFA
     Route: 058
     Dates: start: 20130925, end: 20131016
  3. MIRCERA [Suspect]
     Active Substance: PEGZEREPOETIN ALFA
     Route: 058
     Dates: start: 20140106, end: 20140205
  4. MIRCERA [Suspect]
     Active Substance: PEGZEREPOETIN ALFA
     Route: 058
     Dates: start: 20121114, end: 20121212
  5. MIRCERA [Suspect]
     Active Substance: PEGZEREPOETIN ALFA
     Route: 058
     Dates: start: 20130731, end: 20130828
  6. NU-LOTAN [Concomitant]
     Active Substance: LOSARTAN POTASSIUM
     Route: 048
  7. MIRCERA [Suspect]
     Active Substance: PEGZEREPOETIN ALFA
     Route: 058
     Dates: start: 20120404, end: 20120822
  8. MIRCERA [Suspect]
     Active Substance: PEGZEREPOETIN ALFA
     Route: 058
     Dates: start: 20120919, end: 20120919
  9. MIRCERA [Suspect]
     Active Substance: PEGZEREPOETIN ALFA
     Route: 058
     Dates: start: 20140305, end: 20140723
  10. ZYLORIC [Concomitant]
     Active Substance: ALLOPURINOL
     Route: 048
  11. PRERAN [Concomitant]
     Active Substance: TRANDOLAPRIL
     Route: 048
     Dates: end: 20140819
  12. GASTER [Concomitant]
     Active Substance: FAMOTIDINE
     Indication: DUODENAL ULCER
     Route: 048
     Dates: start: 20080723
  13. MIRCERA [Suspect]
     Active Substance: PEGZEREPOETIN ALFA
     Route: 058
     Dates: start: 20131030, end: 20131225
  14. MIRCERA [Suspect]
     Active Substance: PEGZEREPOETIN ALFA
     Route: 058
     Dates: start: 20120321, end: 20120321
  15. MIRCERA [Suspect]
     Active Substance: PEGZEREPOETIN ALFA
     Route: 058
     Dates: start: 20130109, end: 20130703
  16. WARFARIN [Concomitant]
     Active Substance: WARFARIN
     Indication: ATRIAL FIBRILLATION
     Dosage: 1.0-1.5MG
     Route: 048
     Dates: start: 20130306, end: 20140723
  17. MIRCERA [Suspect]
     Active Substance: PEGZEREPOETIN ALFA
     Indication: NEPHROGENIC ANAEMIA
     Route: 058
     Dates: start: 20120307, end: 20120307
  18. BREDININ [Concomitant]
     Active Substance: MIZORIBINE
     Route: 048

REACTIONS (2)
  - Refractory cytopenia with unilineage dysplasia [Not Recovered/Not Resolved]
  - Plasma cell myeloma [Not Recovered/Not Resolved]

NARRATIVE: CASE EVENT DATE: 20140625
